FAERS Safety Report 20523839 (Version 10)
Quarter: 2024Q1

REPORT INFORMATION
  Report Type: Spontaneous
  Country: CA (occurrence: CA)
  Receive Date: 20220228
  Receipt Date: 20240311
  Transmission Date: 20240410
  Serious: Yes (Other)
  Sender: FDA-Public Use
  Company Number: CA-CELLTRION INC.-2021CA018997

PATIENT

DRUGS (11)
  1. INFLECTRA [Suspect]
     Active Substance: INFLIXIMAB-DYYB
     Indication: Psoriatic arthropathy
     Dosage: 3 MG/KG Q 0, 2, 6, THEN EVERY 8 WEEKS
     Route: 042
     Dates: start: 20210723, end: 20230323
  2. INFLECTRA [Suspect]
     Active Substance: INFLIXIMAB-DYYB
     Dosage: 347 MG
     Route: 042
     Dates: start: 20220217
  3. INFLECTRA [Suspect]
     Active Substance: INFLIXIMAB-DYYB
     Dosage: 3 MG/KG, AT 0, 2, 6, THEN EVERY 8 WEEKS
     Route: 042
     Dates: start: 20220414
  4. INFLECTRA [Suspect]
     Active Substance: INFLIXIMAB-DYYB
     Dosage: 347 MG (3 MG/KG), AT 0, 2, 6, THEN EVERY 8 WEEKS
     Route: 042
     Dates: start: 20220609
  5. INFLECTRA [Suspect]
     Active Substance: INFLIXIMAB-DYYB
     Dosage: 3 MG/KG EVERY 6 WEEKS
     Route: 042
     Dates: start: 20230323
  6. INFLECTRA [Suspect]
     Active Substance: INFLIXIMAB-DYYB
     Dosage: 362 MG (3 MG/KG), EVERY 6 WEEKS (8 WEEKS AND 1 DAY AFTER LAST INFUSION)
     Route: 042
     Dates: start: 20230519
  7. INFLECTRA [Suspect]
     Active Substance: INFLIXIMAB-DYYB
     Dosage: 352 MG (3 MG/KG), EVERY 6 WEEKS(AFTER 6 WEEKS)
     Route: 042
     Dates: start: 20230629
  8. INFLECTRA [Suspect]
     Active Substance: INFLIXIMAB-DYYB
     Dosage: 351 MG (3 MG/KG), EVERY 6 WEEKS
     Route: 042
     Dates: start: 20230810
  9. INFLECTRA [Suspect]
     Active Substance: INFLIXIMAB-DYYB
     Dosage: 356 MG EVERY 6 WEEKS
     Route: 042
     Dates: start: 20230921
  10. INFLECTRA [Suspect]
     Active Substance: INFLIXIMAB-DYYB
     Dosage: 3 MG/KG, EVERY 6 WEEKS
     Route: 042
     Dates: start: 20231214
  11. INFLECTRA [Suspect]
     Active Substance: INFLIXIMAB-DYYB
     Dosage: 3 MG/KG, EVERY 6 WEEKS (350 MG AFTER 6 WEEKS)
     Route: 042
     Dates: start: 20240125

REACTIONS (11)
  - Blood pressure increased [Not Recovered/Not Resolved]
  - Therapeutic response shortened [Unknown]
  - Off label use [Unknown]
  - Off label use [Unknown]
  - Off label use [Unknown]
  - Intentional product use issue [Unknown]
  - Inappropriate schedule of product administration [Unknown]
  - Condition aggravated [Recovering/Resolving]
  - Swelling [Not Recovered/Not Resolved]
  - Erythema [Not Recovered/Not Resolved]
  - Arthralgia [Unknown]

NARRATIVE: CASE EVENT DATE: 20210723
